FAERS Safety Report 7603173-2 (Version None)
Quarter: 2011Q3

REPORT INFORMATION
  Report Type: 
  Country: None (occurrence: None)
  Receive Date: 20110712
  Receipt Date: 20110628
  Transmission Date: 20111222
  Serious: Yes (Disabling, Other)
  Sender: FDA-Public Use
  Company Number: US-CTI_01375_2011

PATIENT
  Age: 42 Year
  Sex: Female
  Weight: 103 kg

DRUGS (6)
  1. HYOMAX SR (HYOSCYAMINE) [Suspect]
     Indication: NAUSEA
     Dosage: 0.375MG, 2 TO 3 TIMES A DAY
     Route: 048
     Dates: start: 19930101
  2. TIGAN [Suspect]
     Indication: NAUSEA
     Dosage: 300 MG, 3 TO 4 TIMES A DAY
  3. LEVBID (HYOSCYAMINE SULFATE) [Suspect]
     Indication: NAUSEA
     Dosage: DF
     Route: 048
     Dates: end: 19930101
  4. ELAVIL [Suspect]
     Indication: IRRITABLE BOWEL SYNDROME
     Dosage: DF
     Route: 048
     Dates: start: 19930101, end: 19930101
  5. XANAX [Suspect]
     Indication: IRRITABLE BOWEL SYNDROME
     Dosage: 0.5 MG, 3 TO 4 TIMES A DAY
     Dates: start: 19930101
  6. AMITRIPTYLINE HCL [Suspect]
     Indication: IRRITABLE BOWEL SYNDROME
     Dosage: 25 MG DAILY,
     Route: 048
     Dates: start: 19930101

REACTIONS (9)
  - BREAST CANCER [None]
  - HYPERTENSION [None]
  - NAUSEA [None]
  - DISTURBANCE IN ATTENTION [None]
  - SINUSITIS [None]
  - HYPERVENTILATION [None]
  - INSOMNIA [None]
  - MENTAL IMPAIRMENT [None]
  - FIBROMYALGIA [None]
